FAERS Safety Report 6933472-9 (Version None)
Quarter: 2010Q3

REPORT INFORMATION
  Report Type: 
  Country: None (occurrence: None)
  Receive Date: 20100820
  Receipt Date: 20100809
  Transmission Date: 20110219
  Serious: No
  Sender: FDA-Public Use
  Company Number: US-PFIZER INC-2010100153

PATIENT
  Sex: Female

DRUGS (7)
  1. ALPRAZOLAM [Suspect]
     Indication: ANXIETY
     Dosage: 2 MG, DAILY
     Route: 048
     Dates: start: 20100719
  2. ALPRAZOLAM [Suspect]
     Indication: SLEEP DISORDER
  3. ALPRAZOLAM [Suspect]
     Dosage: 1 MG, UNK
     Route: 048
     Dates: start: 20070801, end: 20100701
  4. ALPRAZOLAM [Suspect]
  5. LISINOPRIL [Concomitant]
     Dosage: 10 MG, DAILY
     Route: 048
     Dates: start: 20070801
  6. METOPROLOL [Concomitant]
     Dosage: 25 MG, DAILY
     Route: 048
     Dates: start: 20070801
  7. VYTORIN [Concomitant]
     Dosage: 10/40, DAILY
     Route: 048
     Dates: start: 20070801

REACTIONS (2)
  - ANXIETY [None]
  - INSOMNIA [None]
